FAERS Safety Report 12173563 (Version 1)
Quarter: 2016Q1

REPORT INFORMATION
  Report Type: Spontaneous
  Country: US (occurrence: None)
  Receive Date: 20160311
  Receipt Date: 20160311
  Transmission Date: 20160526
  Serious: Yes (Death)
  Sender: FDA-Public Use
  Company Number: None

PATIENT
  Age: 75 Year
  Sex: Male
  Weight: 85 kg

DRUGS (10)
  1. VITAMIN C [Concomitant]
     Active Substance: ASCORBIC ACID
  2. COENZYME Q10 [Concomitant]
     Active Substance: UBIDECARENONE
  3. WELCHOL [Concomitant]
     Active Substance: COLESEVELAM HYDROCHLORIDE
  4. SYNTHROID [Concomitant]
     Active Substance: LEVOTHYROXINE SODIUM
  5. COREG [Concomitant]
     Active Substance: CARVEDILOL
  6. PRADAXA [Concomitant]
     Active Substance: DABIGATRAN ETEXILATE MESYLATE
  7. DABIGATRAN [Suspect]
     Active Substance: DABIGATRAN
     Indication: ATRIAL FIBRILLATION
     Route: 048
     Dates: start: 20151208, end: 20160307
  8. CARDIZEM [Concomitant]
     Active Substance: DILTIAZEM HYDROCHLORIDE
  9. LISINOPRIL. [Concomitant]
     Active Substance: LISINOPRIL
  10. ZETIA [Concomitant]
     Active Substance: EZETIMIBE

REACTIONS (9)
  - Haemoglobin decreased [None]
  - Haemodynamic instability [None]
  - Diarrhoea [None]
  - Heart rate increased [None]
  - Blood pressure decreased [None]
  - Loss of consciousness [None]
  - Acute kidney injury [None]
  - Haematochezia [None]
  - International normalised ratio increased [None]

NARRATIVE: CASE EVENT DATE: 20160307
